FAERS Safety Report 15392265 (Version 1)
Quarter: 2018Q3

REPORT INFORMATION
  Report Type: Spontaneous
  Country: US (occurrence: US)
  Receive Date: 20180917
  Receipt Date: 20180917
  Transmission Date: 20181010
  Serious: Yes (Hospitalization, Other)
  Sender: FDA-Public Use
  Company Number: US-OTSUKA-2018_019324

PATIENT

DRUGS (5)
  1. ABILIFY [Suspect]
     Active Substance: ARIPIPRAZOLE
     Indication: POST-TRAUMATIC STRESS DISORDER
  2. ABILIFY [Suspect]
     Active Substance: ARIPIPRAZOLE
     Indication: BIPOLAR DISORDER
     Dosage: 5?10MG
     Route: 065
     Dates: start: 201401, end: 201701
  3. ABILIFY [Suspect]
     Active Substance: ARIPIPRAZOLE
     Indication: MAJOR DEPRESSION
  4. ABILIFY [Suspect]
     Active Substance: ARIPIPRAZOLE
     Indication: ANXIETY
  5. ABILIFY [Suspect]
     Active Substance: ARIPIPRAZOLE
     Indication: PERSONALITY DISORDER

REACTIONS (12)
  - Compulsive shopping [Not Recovered/Not Resolved]
  - Mental disorder [Unknown]
  - Compulsive hoarding [Not Recovered/Not Resolved]
  - Gambling disorder [Not Recovered/Not Resolved]
  - Product use in unapproved indication [Unknown]
  - Obsessive-compulsive disorder [Unknown]
  - Economic problem [Unknown]
  - Suicide attempt [Not Recovered/Not Resolved]
  - Suicidal ideation [Not Recovered/Not Resolved]
  - Hyperphagia [Unknown]
  - Eating disorder [Not Recovered/Not Resolved]
  - Unintended pregnancy [Unknown]

NARRATIVE: CASE EVENT DATE: 2014
